FAERS Safety Report 11720081 (Version 7)
Quarter: 2016Q2

REPORT INFORMATION
  Report Type: Spontaneous
  Country: CA (occurrence: CA)
  Receive Date: 20151110
  Receipt Date: 20160407
  Transmission Date: 20160815
  Serious: Yes (Other)
  Sender: FDA-Public Use
  Company Number: CA-PFIZER INC-2015375421

PATIENT
  Age: 62 Year
  Sex: Female

DRUGS (11)
  1. PREDNISONE. [Suspect]
     Active Substance: PREDNISONE
     Dosage: 2 PREDNISONE EVERY MORNING
  2. PREDNISONE. [Suspect]
     Active Substance: PREDNISONE
     Indication: RHEUMATOID ARTHRITIS
     Dosage: UNK
     Dates: start: 201506
  3. PREDNISONE. [Suspect]
     Active Substance: PREDNISONE
     Dosage: INCREASED TO 4 EVERY MORNING
  4. PREDNISONE. [Suspect]
     Active Substance: PREDNISONE
     Dosage: 2 PREDNISONE A DAY
  5. ATARAX [Concomitant]
     Active Substance: HYDROXYZINE\HYDROXYZINE HYDROCHLORIDE
     Dosage: 25 MG, 2 PILLS TIMES A DAY
     Dates: start: 201602
  6. XELJANZ [Suspect]
     Active Substance: TOFACITINIB CITRATE
     Indication: RHEUMATOID ARTHRITIS
     Dosage: 5 MG, 1X/DAY
     Route: 048
     Dates: start: 20151016, end: 20151022
  7. PREDNISONE. [Suspect]
     Active Substance: PREDNISONE
     Dosage: INCREASED DOSE
  8. NUCOXIA [Concomitant]
     Active Substance: ETORICOXIB
     Dosage: UNK
  9. XELJANZ [Suspect]
     Active Substance: TOFACITINIB CITRATE
     Dosage: 5 MG, 2X/DAY
     Route: 048
     Dates: start: 20151023, end: 2016
  10. PREDNISONE. [Suspect]
     Active Substance: PREDNISONE
     Dosage: DOWN TO 2 A DAY
  11. PREDNISONE. [Suspect]
     Active Substance: PREDNISONE
     Dosage: ONE

REACTIONS (23)
  - Myalgia [Not Recovered/Not Resolved]
  - Urticaria [Recovered/Resolved]
  - Type 2 diabetes mellitus [Not Recovered/Not Resolved]
  - Asthenia [Unknown]
  - Pruritus [Recovering/Resolving]
  - Headache [Recovering/Resolving]
  - Pain [Unknown]
  - Dizziness [Unknown]
  - Constipation [Unknown]
  - Dry skin [Not Recovered/Not Resolved]
  - Dysuria [Not Recovered/Not Resolved]
  - Spinal pain [Not Recovered/Not Resolved]
  - Erythema [Recovering/Resolving]
  - Arthralgia [Not Recovered/Not Resolved]
  - Skin burning sensation [Recovering/Resolving]
  - Oedema peripheral [Not Recovered/Not Resolved]
  - Burning sensation [Recovered/Resolved]
  - Drug ineffective [Unknown]
  - Swelling [Recovering/Resolving]
  - Skin lesion [Recovered/Resolved]
  - Alopecia [Recovering/Resolving]
  - Rash [Recovered/Resolved]
  - Pain in extremity [Not Recovered/Not Resolved]

NARRATIVE: CASE EVENT DATE: 2015
